FAERS Safety Report 8238885-3 (Version None)
Quarter: 2012Q1

REPORT INFORMATION
  Report Type: 
  Country: None (occurrence: None)
  Receive Date: 20120327
  Receipt Date: 20120324
  Transmission Date: 20120608
  Serious: Yes (Other)
  Sender: FDA-Public Use
  Company Number: PH-PFIZER INC-2012040208

PATIENT
  Age: 30 Year
  Sex: Male
  Weight: 67 kg

DRUGS (3)
  1. LIPITOR [Suspect]
     Indication: BLOOD CHOLESTEROL INCREASED
     Dosage: 20 MG, 1X/DAY
     Route: 048
     Dates: start: 20120206, end: 20120209
  2. ESSENTIALE FORTE [Concomitant]
     Dosage: UNK, 4X/DAY
     Dates: start: 20120206, end: 20120212
  3. FENOFIBRATE [Concomitant]
     Dosage: 200 MG, 3X/DAY
     Dates: start: 20120202, end: 20120205

REACTIONS (3)
  - ASTHENIA [None]
  - BLOOD URINE PRESENT [None]
  - BLOOD CREATININE INCREASED [None]
